FAERS Safety Report 14332474 (Version 1)
Quarter: 2017Q4

REPORT INFORMATION
  Report Type: Spontaneous
  Country: IT (occurrence: IT)
  Receive Date: 20171228
  Receipt Date: 20171228
  Transmission Date: 20180321
  Serious: Yes (Hospitalization, Other)
  Sender: FDA-Public Use
  Company Number: IT-MYLANLABS-2017M1079710

PATIENT
  Sex: Female

DRUGS (2)
  1. PROPRANOLOL [Suspect]
     Active Substance: PROPRANOLOL HYDROCHLORIDE
     Dosage: INCREASED TO TARGET DOSE OF 2 MG/KG/DAY.
     Route: 048
  2. PROPRANOLOL [Suspect]
     Active Substance: PROPRANOLOL HYDROCHLORIDE
     Indication: INFANTILE HAEMANGIOMA
     Dosage: INITIATED AT A DOSE OF 0.5 MG/KG/DAY (IN 2 DAILY DOSES)
     Route: 048

REACTIONS (7)
  - Epilepsy [Recovering/Resolving]
  - Hypoxic-ischaemic encephalopathy [Recovering/Resolving]
  - Cardiac arrest [Recovering/Resolving]
  - Cognitive disorder [Recovering/Resolving]
  - Status epilepticus [Recovering/Resolving]
  - Hypernatraemia [Recovering/Resolving]
  - Paresis [Recovering/Resolving]
